FAERS Safety Report 12797144 (Version 1)
Quarter: 2016Q3

REPORT INFORMATION
  Report Type: Spontaneous
  Country: US (occurrence: US)
  Receive Date: 20160929
  Receipt Date: 20160929
  Transmission Date: 20161109
  Serious: No
  Sender: FDA-Public Use
  Company Number: US-009507513-1609USA009590

PATIENT
  Sex: Female
  Weight: 69.39 kg

DRUGS (1)
  1. NEXPLANON [Suspect]
     Active Substance: ETONOGESTREL
     Indication: CONTRACEPTION
     Dosage: UNK
     Route: 059
     Dates: start: 20151021

REACTIONS (3)
  - Implant site pruritus [Recovered/Resolved]
  - Implant site pruritus [Unknown]
  - Implant site pruritus [Recovered/Resolved]

NARRATIVE: CASE EVENT DATE: 2016
